FAERS Safety Report 11444651 (Version 3)
Quarter: 2015Q4

REPORT INFORMATION
  Report Type: Spontaneous
  Country: US (occurrence: None)
  Receive Date: 20150831
  Receipt Date: 20151218
  Transmission Date: 20160304
  Serious: Yes (Other)
  Sender: FDA-Public Use
  Company Number: ADR-2015-01645

PATIENT
  Age: 54 Year
  Sex: Male

DRUGS (2)
  1. ACIDOPHILUS [Suspect]
     Active Substance: LACTOBACILLUS ACIDOPHILUS
     Dosage: CAP, GASTRIC TUBE BID
  2. LIORESAL [Suspect]
     Active Substance: BACLOFEN
     Indication: MUSCLE SPASTICITY
     Dosage: ~100 TO 101 MCG/DAY

REACTIONS (4)
  - Respiratory distress [None]
  - No therapeutic response [None]
  - Drug hypersensitivity [None]
  - Apallic syndrome [None]
